FAERS Safety Report 11988105 (Version 2)
Quarter: 2016Q1

REPORT INFORMATION
  Report Type: Spontaneous
  Country: GR (occurrence: GR)
  Receive Date: 20160202
  Receipt Date: 20160304
  Transmission Date: 20160526
  Serious: Yes (Other)
  Sender: FDA-Public Use
  Company Number: GR-EMD SERONO-8065148

PATIENT
  Sex: Female

DRUGS (1)
  1. REBIF [Suspect]
     Active Substance: INTERFERON BETA-1A
     Indication: PRODUCT USED FOR UNKNOWN INDICATION
     Dosage: 7 YEARS AGO
     Dates: start: 2009

REACTIONS (4)
  - Maculopathy [Recovering/Resolving]
  - Headache [Recovered/Resolved]
  - Papilloedema [Recovering/Resolving]
  - Lupus-like syndrome [Recovering/Resolving]
